FAERS Safety Report 6936979-3 (Version None)
Quarter: 2010Q3

REPORT INFORMATION
  Report Type: 
  Country: None (occurrence: None)
  Receive Date: 20100823
  Receipt Date: 20100618
  Transmission Date: 20110219
  Serious: Yes (Other)
  Sender: FDA-Public Use
  Company Number: PHHY2010GB30897

PATIENT
  Sex: Male

DRUGS (5)
  1. CLOZARIL [Suspect]
     Indication: SCHIZOPHRENIA
     Dosage: UNK
     Dates: start: 20080415, end: 20100426
  2. CLOZARIL [Suspect]
     Dosage: UNK
     Dates: start: 20100511
  3. OMEPRAZOLE [Concomitant]
     Indication: GASTROOESOPHAGEAL REFLUX DISEASE
     Dosage: UNK
     Route: 048
     Dates: start: 20100428
  4. HYOSCINE [Concomitant]
     Indication: SALIVARY HYPERSECRETION
     Dosage: 300UG - 600UG
     Route: 048
     Dates: start: 20100428
  5. FLUDROCORTISONE [Concomitant]
     Indication: ORTHOSTATIC HYPOTENSION
     Dosage: 50 UG, UNK
     Route: 048
     Dates: start: 20100630

REACTIONS (7)
  - ALANINE AMINOTRANSFERASE INCREASED [None]
  - BLOOD ALBUMIN INCREASED [None]
  - BLOOD CREATINE PHOSPHOKINASE INCREASED [None]
  - BUNDLE BRANCH BLOCK LEFT [None]
  - ELECTROCARDIOGRAM QT PROLONGED [None]
  - HEPATIC STEATOSIS [None]
  - TACHYCARDIA [None]
